FAERS Safety Report 22209287 (Version 1)
Quarter: 2023Q2

REPORT INFORMATION
  Report Type: Spontaneous
  Country: US (occurrence: US)
  Receive Date: 20230413
  Receipt Date: 20230413
  Transmission Date: 20230722
  Serious: Yes (Other)
  Sender: FDA-Public Use
  Company Number: US-BEH-2023157361

PATIENT
  Sex: Female

DRUGS (1)
  1. PRIVIGEN [Suspect]
     Active Substance: HUMAN IMMUNOGLOBULIN G
     Indication: Hypogammaglobulinaemia
     Dosage: 45 GRAM, QMT
     Route: 042
     Dates: start: 20220408

REACTIONS (4)
  - Ventricular tachycardia [Recovering/Resolving]
  - COVID-19 [Unknown]
  - Respiratory disorder [Recovering/Resolving]
  - Headache [Recovering/Resolving]
